FAERS Safety Report 18799612 (Version 1)
Quarter: 2021Q1

REPORT INFORMATION
  Report Type: Spontaneous
  Country: US (occurrence: US)
  Receive Date: 20210128
  Receipt Date: 20210128
  Transmission Date: 20210419
  Serious: Yes (Life-Threatening, Hospitalization)
  Sender: FDA-Public Use
  Company Number: None

PATIENT
  Age: 76 Year
  Sex: Female
  Weight: 57.6 kg

DRUGS (11)
  1. FLUTICASONE NASAL SPRAY [Concomitant]
     Active Substance: FLUTICASONE
  2. XARELTO [Suspect]
     Active Substance: RIVAROXABAN
     Indication: PERIPHERAL ARTERIAL OCCLUSIVE DISEASE
     Route: 048
     Dates: start: 20191114, end: 20200831
  3. CANDESARTAN 8MG [Concomitant]
     Active Substance: CANDESARTAN CILEXETIL
  4. XARELTO [Suspect]
     Active Substance: RIVAROXABAN
     Indication: CORONARY ARTERY DISEASE
     Route: 048
     Dates: start: 20191114, end: 20200831
  5. XARELTO 2.5MG BID [Concomitant]
  6. FUROSEMIDE 20MG [Concomitant]
     Active Substance: FUROSEMIDE
  7. NITROGLYCEN^N 0.4MG [Concomitant]
  8. ASPIRIN 81 MG [Concomitant]
     Active Substance: ASPIRIN
  9. ATON/ASTATIN 20MG [Concomitant]
  10. PROLIA [Concomitant]
     Active Substance: DENOSUMAB
  11. METOPROLOL 25MG [Concomitant]
     Active Substance: METOPROLOL

REACTIONS (4)
  - Fall [None]
  - Respiration abnormal [None]
  - Cerebral haematoma [None]
  - Seizure [None]

NARRATIVE: CASE EVENT DATE: 20200831
